FAERS Safety Report 5454585-7 (Version None)
Quarter: 2007Q3

REPORT INFORMATION
  Report Type: 
  Country: None (occurrence: None)
  Receive Date: 20070917
  Receipt Date: 20061116
  Transmission Date: 20080115
  Serious: No
  Sender: FDA-Public Use
  Company Number: US-ASTRAZENECA-2006UW19867

PATIENT
  Age: 46 Year
  Sex: Female

DRUGS (9)
  1. SEROQUEL [Suspect]
     Indication: ANXIETY
     Route: 048
  2. SEROQUEL [Suspect]
     Indication: SLEEP DISORDER
     Route: 048
  3. SEROQUEL [Suspect]
     Route: 048
     Dates: start: 20040202
  4. SEROQUEL [Suspect]
     Route: 048
     Dates: start: 20040202
  5. SEROQUEL [Suspect]
     Route: 048
     Dates: end: 20060601
  6. SEROQUEL [Suspect]
     Route: 048
     Dates: end: 20060601
  7. SEROQUEL [Suspect]
     Dosage: 25 - 50 MG
     Route: 048
     Dates: start: 20061112
  8. SEROQUEL [Suspect]
     Dosage: 25 - 50 MG
     Route: 048
     Dates: start: 20061112
  9. LEVOTHYROXINE SODIUM [Concomitant]
     Indication: HYPOTHYROIDISM

REACTIONS (4)
  - INSOMNIA [None]
  - MENSTRUATION IRREGULAR [None]
  - PSYCHOMOTOR HYPERACTIVITY [None]
  - SLEEP DISORDER [None]
